FAERS Safety Report 9176939 (Version 3)
Quarter: 2013Q2

REPORT INFORMATION
  Report Type: Spontaneous
  Country: US (occurrence: US)
  Receive Date: 20130321
  Receipt Date: 20130415
  Transmission Date: 20140414
  Serious: Yes (Other)
  Sender: FDA-Public Use
  Company Number: US-PFIZER INC-2013090421

PATIENT
  Age: 53 Year
  Sex: Female
  Weight: 85 kg

DRUGS (3)
  1. LEVOXYL [Suspect]
     Indication: HYPOTHYROIDISM
     Dosage: 50 MG, 3X/DAY, FOR THREE DAYS IN A WEEK
     Route: 048
     Dates: start: 1999
  2. LEVOXYL [Suspect]
     Dosage: 50 UG, 4X/DAY, FOR THE NEXT FOUR DAYS IN A WEEK
     Route: 048
     Dates: start: 1999
  3. LEVOXYL [Suspect]
     Dosage: UNK

REACTIONS (6)
  - Hyperthyroidism [Unknown]
  - Suspected counterfeit product [Unknown]
  - Drug ineffective [Unknown]
  - Weight increased [Not Recovered/Not Resolved]
  - Insomnia [Unknown]
  - Malabsorption [Unknown]
